FAERS Safety Report 16441080 (Version 2)
Quarter: 2019Q2

REPORT INFORMATION
  Report Type: Spontaneous
  Country: JP (occurrence: JP)
  Receive Date: 20190617
  Receipt Date: 20190626
  Transmission Date: 20190711
  Serious: Yes (Other)
  Sender: FDA-Public Use
  Company Number: JP-BAUSCH-BL-2019-017282

PATIENT
  Age: 77 Year
  Sex: Female

DRUGS (3)
  1. VISUDYNE [Suspect]
     Active Substance: VERTEPORFIN
     Indication: AGE-RELATED MACULAR DEGENERATION
     Route: 042
  2. EYLEA [Concomitant]
     Active Substance: AFLIBERCEPT
     Indication: PRODUCT USED FOR UNKNOWN INDICATION
     Dosage: (IVA) SWITCH 3, CONTINUED AT INTERVALS OF 4 TO 6 WEEKS
     Dates: start: 2013
  3. EYLEA [Concomitant]
     Active Substance: AFLIBERCEPT
     Dosage: ANTI-VEGF THERAPY (EYLEA) WAS CONDUCTED IN COMBINATION WITH PDT
     Dates: start: 2017

REACTIONS (2)
  - Disease progression [Unknown]
  - Age-related macular degeneration [Unknown]
